FAERS Safety Report 4541074-7 (Version None)
Quarter: 2004Q4

REPORT INFORMATION
  Report Type: 
  Country: None (occurrence: None)
  Receive Date: 20041228
  Receipt Date: 20041119
  Transmission Date: 20050328
  Serious: Yes (Death)
  Sender: FDA-Public Use
  Company Number: 2004097555

PATIENT
  Age: 62 Year
  Sex: Male

DRUGS (4)
  1. CELEBREX [Suspect]
     Indication: ILL-DEFINED DISORDER
     Dosage: 400 MG (200 MG, BID), ORAL
     Route: 048
  2. INDOMETHACIN [Suspect]
     Indication: ILL-DEFINED DISORDER
  3. TENORETIC 100 [Concomitant]
  4. CODEINE PHOSPHATE AND ACETAMINOPHEN [Concomitant]

REACTIONS (1)
  - MYOCARDIAL INFARCTION [None]
